FAERS Safety Report 12074378 (Version 1)
Quarter: 2016Q1

REPORT INFORMATION
  Report Type: Spontaneous
  Country: US (occurrence: US)
  Receive Date: 20160212
  Receipt Date: 20160212
  Transmission Date: 20160526
  Serious: Yes (Death)
  Sender: FDA-Public Use
  Company Number: US-PERRIGO-16US001379

PATIENT
  Age: 36 Year
  Sex: Male

DRUGS (3)
  1. DOXYLAMINE SUCCINATE 25 MG 441 [Suspect]
     Active Substance: DOXYLAMINE SUCCINATE
     Indication: COMPLETED SUICIDE
     Dosage: UNKNOWN, UNKNOWN
     Route: 048
  2. CYCLOBENZAPRINE [Suspect]
     Active Substance: CYCLOBENZAPRINE
     Indication: COMPLETED SUICIDE
     Dosage: UNKNOWN, UNKNOWN
     Route: 048
  3. HYDROCODONE [Suspect]
     Active Substance: HYDROCODONE
     Indication: COMPLETED SUICIDE
     Dosage: UNKNOWN, UNKNOWN
     Route: 048

REACTIONS (1)
  - Death [Fatal]
